FAERS Safety Report 19748768 (Version 1)
Quarter: 2021Q3

REPORT INFORMATION
  Report Type: Spontaneous
  Country: US (occurrence: US)
  Receive Date: 20210825
  Receipt Date: 20210825
  Transmission Date: 20211014
  Serious: Yes (Hospitalization)
  Sender: FDA-Public Use
  Company Number: None

PATIENT
  Age: 46 Year
  Sex: Female

DRUGS (1)
  1. HUMIRA [Suspect]
     Active Substance: ADALIMUMAB
     Indication: PSORIATIC ARTHROPATHY
     Dosage: OTHER FREQUENCY:WEEKLY;?
     Route: 058
     Dates: start: 20210128, end: 20210701

REACTIONS (1)
  - Histoplasmosis [None]

NARRATIVE: CASE EVENT DATE: 20210701
